FAERS Safety Report 17014246 (Version 1)
Quarter: 2019Q4

REPORT INFORMATION
  Report Type: Spontaneous
  Country: US (occurrence: US)
  Receive Date: 20191111
  Receipt Date: 20191111
  Transmission Date: 20200122
  Serious: No
  Sender: FDA-Public Use
  Company Number: US-STRIDES ARCOLAB LIMITED-2019SP002162

PATIENT
  Sex: Male

DRUGS (4)
  1. LOSARTAN. [Suspect]
     Active Substance: LOSARTAN
     Dosage: 50 MG, UNKNOWN, HERITAGE LOSARTAN
     Route: 065
     Dates: start: 20181212
  2. LOSARTAN. [Suspect]
     Active Substance: LOSARTAN
     Dosage: 75 MG, UNKNOWN, HERITAGE LOSARTAN
     Route: 065
  3. LOSARTAN. [Suspect]
     Active Substance: LOSARTAN
     Indication: HYPERTENSION
     Dosage: UNK, AUROBINDO
     Route: 065
  4. LOSARTAN. [Suspect]
     Active Substance: LOSARTAN
     Dosage: UNK, AUROBINDO
     Route: 065
     Dates: start: 20190125

REACTIONS (2)
  - Product substitution issue [Unknown]
  - Drug ineffective [Unknown]
